FAERS Safety Report 9417544 (Version 2)
Quarter: 2013Q4

REPORT INFORMATION
  Report Type: Spontaneous
  Country: CN (occurrence: CN)
  Receive Date: 20130724
  Receipt Date: 20131024
  Transmission Date: 20140711
  Serious: Yes (Other)
  Sender: FDA-Public Use
  Company Number: CN-PFIZER INC-2013213706

PATIENT
  Age: 62 Year
  Sex: Female

DRUGS (2)
  1. METHYLPREDNISOLONE SODIUM SUCCINATE [Suspect]
     Indication: ASTHMA
     Dosage: 40 MG, UNK
     Route: 042
  2. 5% GS 50ML [Concomitant]
     Indication: ASTHMA
     Dosage: 5% GS 50ML

REACTIONS (1)
  - Anaphylactic shock [Recovered/Resolved]
